FAERS Safety Report 8817305 (Version 2)
Quarter: 2012Q4

REPORT INFORMATION
  Report Type: 
  Country: DK (occurrence: DK)
  Receive Date: 20121004
  Receipt Date: 20121211
  Transmission Date: 20130627
  Serious: Yes (Other)
  Sender: FDA-Public Use
  Company Number: DK-B.I. PHARMACEUTICALS,INC./RIDGEFIELD-2012-SW-00743DB

PATIENT
  Age: 74 Year
  Sex: Male
  Weight: 106 kg

DRUGS (7)
  1. PRADAXA [Suspect]
     Indication: ATRIAL FIBRILLATION
     Dosage: 220 mg
     Route: 048
     Dates: start: 20111201, end: 20120417
  2. FURIX [Concomitant]
     Indication: DIURETIC THERAPY
     Dosage: 40 mg
     Dates: start: 20120403
  3. ISOPTIN RETARD [Concomitant]
     Dates: start: 20111201
  4. KALEORID [Concomitant]
     Indication: HYPOKALAEMIA
     Dosage: 750 mg
     Dates: start: 20120403
  5. ZOCOR [Concomitant]
     Indication: HYPERCHOLESTEROLAEMIA
     Dosage: 20 mg
     Dates: start: 20120117, end: 20120424
  6. OMNIC [Concomitant]
     Indication: MICTURITION DISORDER
     Dosage: 0.4 mg
     Dates: start: 201010, end: 20120216
  7. DICILLIN [Concomitant]
     Indication: SKIN INFECTION
     Dosage: 1500 mg
     Dates: start: 20120410, end: 20120420

REACTIONS (2)
  - Spontaneous haematoma [Recovered/Resolved]
  - Skin ulcer [Recovered/Resolved]
